FAERS Safety Report 6892930-6 (Version None)
Quarter: 2010Q3

REPORT INFORMATION
  Report Type: 
  Country: None (occurrence: None)
  Receive Date: 20100731
  Receipt Date: 20081113
  Transmission Date: 20110219
  Serious: No
  Sender: FDA-Public Use
  Company Number: US-PFIZER INC-2008033393

PATIENT
  Sex: Female
  Weight: 70.4 kg

DRUGS (4)
  1. GABAPENTIN [Suspect]
     Indication: NEURALGIA
     Route: 048
     Dates: start: 20060101, end: 20070101
  2. ACETAMINOPHEN [Concomitant]
  3. ANTIDEPRESSANTS [Concomitant]
  4. DRUG, UNSPECIFIED [Concomitant]

REACTIONS (5)
  - BALANCE DISORDER [None]
  - FEELING DRUNK [None]
  - GAIT DISTURBANCE [None]
  - GOITRE [None]
  - IMPAIRED DRIVING ABILITY [None]
